FAERS Safety Report 4550704-5 (Version None)
Quarter: 2004Q4

REPORT INFORMATION
  Report Type: 
  Country: None (occurrence: None)
  Receive Date: 20041217
  Receipt Date: 20041026
  Transmission Date: 20050328
  Serious: No
  Sender: FDA-Public Use
  Company Number: 2004-BP-10855BP(0)

PATIENT
  Age: 69 Year
  Sex: Male

DRUGS (5)
  1. SPIRIVA [Suspect]
     Indication: CHRONIC OBSTRUCTIVE AIRWAYS DISEASE
     Dosage: 18 MCG (18 MCG, 1 IN 1 D) IH
     Route: 055
     Dates: start: 20040601
  2. PREVACID [Concomitant]
  3. ZANTAC [Concomitant]
  4. BENECUR [Concomitant]
  5. HYTRIN [Concomitant]

REACTIONS (1)
  - DYSGEUSIA [None]
